FAERS Safety Report 14140776 (Version 1)
Quarter: 2017Q4

REPORT INFORMATION
  Report Type: Spontaneous
  Country: US (occurrence: US)
  Receive Date: 20171030
  Receipt Date: 20171030
  Transmission Date: 20180321
  Serious: No
  Sender: FDA-Public Use
  Company Number: US-ELI_LILLY_AND_COMPANY-US201710006352

PATIENT
  Age: 62 Year
  Sex: Female

DRUGS (2)
  1. HUMULIN R [Suspect]
     Active Substance: INSULIN HUMAN
     Indication: TYPE 1 DIABETES MELLITUS
     Dosage: UNK, UNKNOWN
     Route: 065
     Dates: start: 2001
  2. HUMULIN N [Concomitant]
     Active Substance: INSULIN HUMAN
     Indication: PRODUCT USED FOR UNKNOWN INDICATION

REACTIONS (2)
  - Blood glucose increased [Recovered/Resolved]
  - Drug dose omission [Unknown]

NARRATIVE: CASE EVENT DATE: 20171001
